FAERS Safety Report 22171465 (Version 1)
Quarter: 2023Q2

REPORT INFORMATION
  Report Type: Spontaneous
  Country: US (occurrence: None)
  Receive Date: 20230403
  Receipt Date: 20230403
  Transmission Date: 20230722
  Serious: Yes (Other)
  Sender: FDA-Public Use
  Company Number: None

PATIENT
  Sex: Female

DRUGS (1)
  1. TALTZ [Suspect]
     Active Substance: IXEKIZUMAB
     Indication: Product used for unknown indication
     Dosage: INJECT 1 PEN (80 MG) UNDER TEH SKIN (SUBCUTANEOUS INJECTION)EVERY 28 DAYS
     Route: 058

REACTIONS (3)
  - Pain [None]
  - Loss of personal independence in daily activities [None]
  - Therapy interrupted [None]
